FAERS Safety Report 11044937 (Version 1)
Quarter: 2015Q2

REPORT INFORMATION
  Report Type: Spontaneous
  Country: JP (occurrence: None)
  Receive Date: 20150415
  Receipt Date: 20150415
  Transmission Date: 20150821
  Serious: Yes (Death, Hospitalization)
  Sender: FDA-Public Use
  Company Number: FK201501693

PATIENT
  Age: 74 Year
  Sex: Male

DRUGS (3)
  1. LEUCOVORIN (CALCIUM FOLINATE) [Suspect]
     Active Substance: LEUCOVORIN
     Indication: COLORECTAL CANCER
     Dosage: CYCLICAL
  2. OXALIPLATIN (MANUFACTURER UNKNOWN) (OXALIPLATIN) (OXALIPLATIN) [Suspect]
     Active Substance: OXALIPLATIN
     Indication: COLORECTAL CANCER
     Dosage: CYCLICAL
  3. FLUOROURACIL (FLUOROURACIL) (FLUOROURACIL) [Suspect]
     Active Substance: FLUOROURACIL
     Indication: COLORECTAL CANCER
     Dosage: CYCLICAL

REACTIONS (9)
  - Acute myeloid leukaemia [None]
  - Neuropathy peripheral [None]
  - Haematotoxicity [None]
  - Pancytopenia [None]
  - Toxicity to various agents [None]
  - Pneumonia aspiration [None]
  - Intestinal obstruction [None]
  - Abdominal pain [None]
  - Colorectal cancer recurrent [None]
